FAERS Safety Report 20219188 (Version 1)
Quarter: 2021Q4

REPORT INFORMATION
  Report Type: Report from Study
  Country: BR (occurrence: BR)
  Receive Date: 20211222
  Receipt Date: 20211222
  Transmission Date: 20220303
  Serious: Yes (Hospitalization, Other)
  Sender: FDA-Public Use
  Company Number: BR-JNJFOC-20211235827

PATIENT
  Age: 40 Year
  Sex: Female
  Weight: 40 kg

DRUGS (1)
  1. INFLIXIMAB [Suspect]
     Active Substance: INFLIXIMAB
     Indication: Rheumatoid arthritis
     Dosage: (DOSE 2 AMPOULES AND INTERVAL 2 MONTHS)
     Route: 042
     Dates: start: 20190129

REACTIONS (11)
  - Heart rate abnormal [Unknown]
  - Infusion related reaction [Unknown]
  - Hypersensitivity [Unknown]
  - Diabetes mellitus inadequate control [Unknown]
  - Pancreatitis acute [Unknown]
  - Urinary retention [Unknown]
  - Abscess oral [Unknown]
  - Malaise [Unknown]
  - Cystitis [Unknown]
  - Gait disturbance [Unknown]
  - Loss of personal independence in daily activities [Unknown]

NARRATIVE: CASE EVENT DATE: 20190129
